FAERS Safety Report 4679114-7 (Version None)
Quarter: 2005Q2

REPORT INFORMATION
  Report Type: 
  Country: None (occurrence: None)
  Receive Date: 20050527
  Receipt Date: 20050212
  Transmission Date: 20051028
  Serious: No
  Sender: FDA-Public Use
  Company Number: PHEH2005US02032

PATIENT
  Age: 38 Year
  Sex: Female
  Weight: 112 kg

DRUGS (1)
  1. ZELNORM [Suspect]
     Indication: IMPAIRED GASTRIC EMPTYING
     Dosage: 12 MG, BID

REACTIONS (1)
  - CONSTIPATION [None]
